FAERS Safety Report 4808645-1 (Version None)
Quarter: 2005Q4

REPORT INFORMATION
  Report Type: 
  Country: None (occurrence: None)
  Receive Date: 20051021
  Receipt Date: 20040121
  Transmission Date: 20060501
  Serious: No
  Sender: FDA-Public Use
  Company Number: AU_040107393

PATIENT
  Age: 65 Year
  Sex: Male

DRUGS (4)
  1. ZYPREXA [Suspect]
     Indication: BIPOLAR DISORDER
     Dosage: 20 MG/DAY
     Route: 048
     Dates: start: 20031001, end: 20040130
  2. ZYPREXA [Suspect]
     Indication: SCHIZOAFFECTIVE DISORDER
     Dosage: 20 MG/DAY
     Route: 048
     Dates: start: 20031001, end: 20040130
  3. VALPROATE SODIUM [Concomitant]
  4. LITHIUM [Concomitant]

REACTIONS (1)
  - EOSINOPHILIA [None]
